FAERS Safety Report 17906821 (Version 1)
Quarter: 2020Q2

REPORT INFORMATION
  Report Type: Spontaneous
  Country: JP (occurrence: JP)
  Receive Date: 20200617
  Receipt Date: 20200617
  Transmission Date: 20200714
  Serious: Yes (Death)
  Sender: FDA-Public Use
  Company Number: JP-PFIZER INC-2020235047

PATIENT

DRUGS (2)
  1. CELECOX [Suspect]
     Active Substance: CELECOXIB
     Indication: BACK PAIN
  2. CELECOX [Suspect]
     Active Substance: CELECOXIB
     Indication: GOUT
     Dosage: 200 MG, DAILY
     Route: 048

REACTIONS (1)
  - Death [Fatal]
